FAERS Safety Report 7713806-8 (Version None)
Quarter: 2011Q3

REPORT INFORMATION
  Report Type: 
  Country: None (occurrence: None)
  Receive Date: 20110826
  Receipt Date: 20110822
  Transmission Date: 20111222
  Serious: No
  Sender: FDA-Public Use
  Company Number: US-PFIZER INC-2011168444

PATIENT
  Sex: Male

DRUGS (1)
  1. VERAPAMIL HCL [Suspect]
     Dosage: 120 MG, DAILY

REACTIONS (5)
  - CHEST PAIN [None]
  - FEELING ABNORMAL [None]
  - HYPERTENSION [None]
  - DRUG INEFFECTIVE [None]
  - FEELING JITTERY [None]
